FAERS Safety Report 5614619-3 (Version None)
Quarter: 2008Q1

REPORT INFORMATION
  Report Type: 
  Country: None (occurrence: None)
  Receive Date: 20080131
  Receipt Date: 20080123
  Transmission Date: 20080703
  Serious: Yes (Hospitalization, Other)
  Sender: FDA-Public Use
  Company Number: TAP2008Q00096

PATIENT
  Age: 62 Year
  Sex: Male
  Weight: 180 kg

DRUGS (1)
  1. LUPRON DEPOT-3 MONTH 22.5 MG (LEUPROLIDE ACETAE) [Suspect]
     Indication: PROSTATE CANCER
     Dosage: 22.5 MG, 1 IN 3 M, INTRAMUSCULAR
     Route: 030
     Dates: start: 20071010

REACTIONS (2)
  - CARDIAC FIBRILLATION [None]
  - NON-SMALL CELL LUNG CANCER [None]
